FAERS Safety Report 20363795 (Version 3)
Quarter: 2022Q1

REPORT INFORMATION
  Report Type: Report from Study
  Country: CA (occurrence: None)
  Receive Date: 20220121
  Receipt Date: 20220303
  Transmission Date: 20220423
  Serious: Yes (Other)
  Sender: FDA-Public Use
  Company Number: CA-Merck Healthcare KGaA-9294213

PATIENT
  Age: 31 Year
  Sex: Female

DRUGS (1)
  1. MAVENCLAD [Suspect]
     Active Substance: CLADRIBINE
     Indication: Multiple sclerosis
     Dosage: YEAR ONE THERAPY.
     Route: 048
     Dates: start: 20210120, end: 202102

REACTIONS (4)
  - Nasal septal operation [Unknown]
  - Post procedural infection [Unknown]
  - Clostridium difficile infection [Unknown]
  - Post-traumatic stress disorder [Unknown]
